FAERS Safety Report 5392667-9 (Version None)
Quarter: 2007Q3

REPORT INFORMATION
  Report Type: 
  Country: None (occurrence: None)
  Receive Date: 20070720
  Receipt Date: 20070712
  Transmission Date: 20080115
  Serious: Yes (Congenital Anomaly)
  Sender: FDA-Public Use
  Company Number: GB-ABBOTT-07P-167-0374434-00

PATIENT
  Sex: Female

DRUGS (1)
  1. EPILIM [Suspect]
     Indication: DRUG EXPOSURE DURING PREGNANCY
     Route: 064

REACTIONS (1)
  - FOETAL ANTICONVULSANT SYNDROME [None]
